FAERS Safety Report 6020939-3 (Version None)
Quarter: 2008Q4

REPORT INFORMATION
  Report Type: 
  Country: None (occurrence: None)
  Receive Date: 20081229
  Receipt Date: 20081219
  Transmission Date: 20090506
  Serious: Yes (Other)
  Sender: FDA-Public Use
  Company Number: US-BAYER-200841311NA

PATIENT
  Age: 73 Year
  Sex: Female
  Weight: 135 kg

DRUGS (5)
  1. FLUDARA [Suspect]
     Indication: B-CELL LYMPHOMA
     Dosage: TOTAL DAILY DOSE: 250 MG/M2
     Dates: start: 20070606
  2. RITUXAN [Suspect]
     Indication: B-CELL LYMPHOMA
     Dates: start: 20070606
  3. CYTOXAN [Suspect]
     Indication: B-CELL LYMPHOMA
     Dosage: TOTAL DAILY DOSE: 29 MG/M2
     Dates: start: 20070606
  4. PROCRIT [Suspect]
     Indication: ANAEMIA OF MALIGNANT DISEASE
     Dosage: TOTAL DAILY DOSE: 40000 IU
     Route: 058
     Dates: start: 20070613, end: 20070806
  5. PROCRIT [Suspect]
     Dosage: TOTAL DAILY DOSE: 60000 IU
     Route: 058
     Dates: start: 20070813

REACTIONS (1)
  - PANCYTOPENIA [None]
